FAERS Safety Report 21054543 (Version 6)
Quarter: 2024Q1

REPORT INFORMATION
  Report Type: Spontaneous
  Country: JP (occurrence: JP)
  Receive Date: 20220707
  Receipt Date: 20240328
  Transmission Date: 20240409
  Serious: Yes (Death, Life-Threatening, Hospitalization, Other)
  Sender: FDA-Public Use
  Company Number: JP-PFIZER INC-PV202200016994

PATIENT
  Age: 84 Year
  Sex: Female
  Weight: 46 kg

DRUGS (7)
  1. IBRANCE [Suspect]
     Active Substance: PALBOCICLIB
     Indication: Breast cancer metastatic
     Dosage: 100 MG, 1X/DAY
     Route: 048
     Dates: start: 20220415, end: 20220515
  2. IBRANCE [Suspect]
     Active Substance: PALBOCICLIB
     Dosage: 75 MG
     Route: 048
     Dates: start: 20220516, end: 20220620
  3. FEMARA [Concomitant]
     Active Substance: LETROZOLE
     Indication: Breast cancer metastatic
     Dosage: 2.5 MG, 1X/DAY
     Route: 048
     Dates: start: 20220415, end: 20220620
  4. AMLODIPINE BESYLATE [Concomitant]
     Active Substance: AMLODIPINE BESYLATE
     Indication: Hypertension
     Dosage: 5 MG, 1X/DAY
     Route: 048
     Dates: end: 20220620
  5. BAZEDOXIFENE [Concomitant]
     Active Substance: BAZEDOXIFENE
     Indication: Osteoporosis
     Dosage: 20 MG, 1X/DAY
     Route: 048
     Dates: end: 20220620
  6. BETAHISTINE MESILATE [Concomitant]
     Active Substance: BETAHISTINE MESILATE
     Indication: Dizziness
     Dosage: 6 MG, 3X/DAY
     Route: 048
     Dates: end: 20220620
  7. KETOPROFEN [Concomitant]
     Active Substance: KETOPROFEN
     Indication: Myalgia
     Dosage: 120 MG, 1X/DAY
     Route: 061
     Dates: end: 20220620

REACTIONS (10)
  - Neoplasm progression [Fatal]
  - Interstitial lung disease [Recovered/Resolved with Sequelae]
  - Biliary dilatation [Unknown]
  - Malaise [Recovering/Resolving]
  - Renal abscess [Unknown]
  - Rib fracture [Unknown]
  - Neutropenia [Recovering/Resolving]
  - Stomatitis [Recovering/Resolving]
  - Diverticulum intestinal [Unknown]
  - Bone deformity [Unknown]

NARRATIVE: CASE EVENT DATE: 20220429
